FAERS Safety Report 7077801-7 (Version None)
Quarter: 2010Q4

REPORT INFORMATION
  Report Type: 
  Country: None (occurrence: None)
  Receive Date: 20101101
  Receipt Date: 20101019
  Transmission Date: 20110411
  Serious: Yes (Other)
  Sender: FDA-Public Use
  Company Number: PHHY2010CA69935

PATIENT
  Sex: Male

DRUGS (6)
  1. CLOZARIL [Suspect]
     Indication: SCHIZOPHRENIA, DISORGANISED TYPE
     Dosage: 600 MG
     Route: 048
     Dates: start: 20030101, end: 20101019
  2. PROPRANOLOL [Concomitant]
     Dosage: UNK
  3. VALPROIC ACID [Concomitant]
     Dosage: UNK
  4. RISPERDAL [Concomitant]
  5. ACETAMINOPHEN [Concomitant]
     Dosage: PRN
  6. RISPERIDONE [Concomitant]
     Dosage: UNK

REACTIONS (2)
  - OSTEONECROSIS [None]
  - PAIN [None]
